FAERS Safety Report 23070576 (Version 3)
Quarter: 2023Q4

REPORT INFORMATION
  Report Type: Spontaneous
  Country: US (occurrence: US)
  Receive Date: 20231016
  Receipt Date: 20231026
  Transmission Date: 20240109
  Serious: No
  Sender: FDA-Public Use
  Company Number: US-SANOFI-01798907

PATIENT
  Age: 72 Year
  Sex: Female

DRUGS (1)
  1. DUPIXENT [Suspect]
     Active Substance: DUPILUMAB
     Indication: Eczema
     Dosage: 300 MG, QOW
     Route: 065

REACTIONS (8)
  - Tongue discomfort [Recovered/Resolved]
  - Paraesthesia oral [Recovered/Resolved]
  - Oesophageal pain [Recovered/Resolved]
  - Lip pain [Recovered/Resolved]
  - Salivary duct obstruction [Recovering/Resolving]
  - Lip swelling [Recovered/Resolved]
  - Eczema [Unknown]
  - Drug ineffective [Unknown]

NARRATIVE: CASE EVENT DATE: 20230101
